FAERS Safety Report 14656327 (Version 1)
Quarter: 2018Q1

REPORT INFORMATION
  Report Type: Spontaneous
  Country: US (occurrence: US)
  Receive Date: 20180319
  Receipt Date: 20180319
  Transmission Date: 20180509
  Serious: Yes (Hospitalization, Other)
  Sender: FDA-Public Use
  Company Number: US-ASTELLAS-2018US012776

PATIENT
  Age: 16 Year
  Sex: Female

DRUGS (5)
  1. CHLORAMBUCIL [Suspect]
     Active Substance: CHLORAMBUCIL
     Indication: EXTRANODAL MARGINAL ZONE B-CELL LYMPHOMA (MALT TYPE)
     Route: 065
  2. TACROLIMUS. [Suspect]
     Active Substance: TACROLIMUS
     Indication: HEART TRANSPLANT
     Route: 065
  3. TACROLIMUS. [Suspect]
     Active Substance: TACROLIMUS
     Route: 065
     Dates: start: 201703
  4. TACROLIMUS. [Suspect]
     Active Substance: TACROLIMUS
     Route: 065
     Dates: start: 20170113
  5. TACROLIMUS. [Suspect]
     Active Substance: TACROLIMUS
     Route: 065
     Dates: start: 20170217

REACTIONS (11)
  - Malnutrition [Unknown]
  - Febrile neutropenia [Unknown]
  - Neutropenia [Unknown]
  - Post transplant lymphoproliferative disorder [Unknown]
  - Drug intolerance [Unknown]
  - Abnormal loss of weight [Unknown]
  - Interstitial lung disease [Unknown]
  - Epstein-Barr virus test positive [Unknown]
  - Pneumothorax [Unknown]
  - Diffuse large B-cell lymphoma [Recovered/Resolved]
  - Lymphadenopathy [Unknown]
